FAERS Safety Report 13993814 (Version 2)
Quarter: 2018Q2

REPORT INFORMATION
  Report Type: Spontaneous
  Country: IT (occurrence: IT)
  Receive Date: 20170920
  Receipt Date: 20180411
  Transmission Date: 20180711
  Serious: Yes (Other)
  Sender: FDA-Public Use
  Company Number: PHHY2017IT137060

PATIENT
  Age: 40 Year
  Sex: Female

DRUGS (3)
  1. PANTOPRAZOLE SODIUM SESQUIHYDRATE [Suspect]
     Active Substance: PANTOPRAZOLE SODIUM
     Indication: OESOPHAGEAL CANDIDIASIS
     Dosage: UNK
     Route: 065
     Dates: start: 20170831
  2. SODIUM ALGINATE [Suspect]
     Active Substance: SODIUM ALGINATE
     Indication: OESOPHAGEAL CANDIDIASIS
     Route: 065
     Dates: start: 20170831
  3. FLUCONAZOLE. [Suspect]
     Active Substance: FLUCONAZOLE
     Indication: OESOPHAGEAL CANDIDIASIS
     Dosage: UNK
     Route: 065
     Dates: start: 20170831

REACTIONS (5)
  - Erythema [Unknown]
  - Abdominal pain upper [Unknown]
  - Pruritus generalised [Unknown]
  - Abdominal pain [Unknown]
  - Gastrooesophageal reflux disease [Unknown]

NARRATIVE: CASE EVENT DATE: 20170901
